FAERS Safety Report 20031897 (Version 1)
Quarter: 2021Q4

REPORT INFORMATION
  Report Type: Spontaneous
  Country: FR (occurrence: FR)
  Receive Date: 20211103
  Receipt Date: 20211103
  Transmission Date: 20220303
  Serious: Yes (Hospitalization, Congenital Anomaly, Other)
  Sender: FDA-Public Use
  Company Number: FR-ABBVIE-21K-056-4138918-00

PATIENT
  Sex: Male
  Weight: 4.03 kg

DRUGS (2)
  1. VALPROATE SODIUM [Suspect]
     Active Substance: VALPROATE SODIUM
     Indication: Maternal exposure timing unspecified
     Route: 064
  2. TOPIRAMATE [Suspect]
     Active Substance: TOPIRAMATE
     Indication: Maternal exposure timing unspecified
     Route: 064

REACTIONS (39)
  - Dairy intolerance [Unknown]
  - Drug hypersensitivity [Unknown]
  - Hyperthermia [Unknown]
  - Psychomotor skills impaired [Unknown]
  - Heterophoria [Unknown]
  - Communication disorder [Unknown]
  - Speech disorder developmental [Unknown]
  - Dyslexia [Unknown]
  - Dysmorphism [Unknown]
  - Dysgraphia [Unknown]
  - Fine motor skill dysfunction [Unknown]
  - Speech disorder [Unknown]
  - Language disorder [Unknown]
  - Dacryostenosis congenital [Unknown]
  - Memory impairment [Unknown]
  - Bradyphrenia [Unknown]
  - Disorientation [Unknown]
  - Speech sound disorder [Unknown]
  - Psychiatric symptom [Unknown]
  - Coordination abnormal [Unknown]
  - Motor developmental delay [Unknown]
  - Ophthalmological examination abnormal [Unknown]
  - Social (pragmatic) communication disorder [Unknown]
  - Hypoacusis [Unknown]
  - Dysgraphia [Unknown]
  - Reading disorder [Unknown]
  - Speech sound disorder [Unknown]
  - Eye discharge [Unknown]
  - Hypermetropia [Unknown]
  - Restlessness [Unknown]
  - Nasopharyngitis [Unknown]
  - Fatigue [Unknown]
  - Conjunctivitis [Unknown]
  - Disturbance in attention [Unknown]
  - Learning disorder [Unknown]
  - Enuresis [Unknown]
  - Rash [Unknown]
  - Cough [Unknown]
  - Foetal exposure during pregnancy [Unknown]

NARRATIVE: CASE EVENT DATE: 20100401
